FAERS Safety Report 4498855-8 (Version None)
Quarter: 2004Q3

REPORT INFORMATION
  Report Type: 
  Country: None (occurrence: None)
  Receive Date: 20040927
  Receipt Date: 20040621
  Transmission Date: 20050211
  Serious: No
  Sender: FDA-Public Use
  Company Number: USA040670738

PATIENT
  Age: 45 Year
  Sex: Female

DRUGS (6)
  1. STRATTERA [Suspect]
     Indication: ATTENTION DEFICIT/HYPERACTIVITY DISORDER
     Dosage: 40 MG IN THE MORNING
     Dates: start: 20040619
  2. ANTIBIOTIC [Concomitant]
  3. CLARITIN [Concomitant]
  4. IBUPROFEN [Concomitant]
  5. DARVOCET-N 100 [Concomitant]
  6. XANAX (ALPRAZOLAM DUM) [Concomitant]

REACTIONS (7)
  - CHILLS [None]
  - DIZZINESS [None]
  - HEADACHE [None]
  - HEART RATE INCREASED [None]
  - HYPERHIDROSIS [None]
  - INSOMNIA [None]
  - TINNITUS [None]
